FAERS Safety Report 16784230 (Version 1)
Quarter: 2019Q3

REPORT INFORMATION
  Report Type: Spontaneous
  Country: KR (occurrence: KR)
  Receive Date: 20190909
  Receipt Date: 20190909
  Transmission Date: 20191005
  Serious: Yes (Hospitalization, Other)
  Sender: FDA-Public Use
  Company Number: KR-SUN PHARMACEUTICAL INDUSTRIES LTD-2019RR-220078

PATIENT
  Age: 64 Year
  Sex: Male

DRUGS (1)
  1. ASPIRIN. [Suspect]
     Active Substance: ASPIRIN
     Indication: PRODUCT USED FOR UNKNOWN INDICATION
     Dosage: 100 MILLIGRAM, UNK
     Route: 065

REACTIONS (3)
  - Ulcer [Unknown]
  - Oesophageal haemorrhage [Unknown]
  - Stomatitis [Unknown]
